FAERS Safety Report 5286970-0 (Version None)
Quarter: 2007Q1

REPORT INFORMATION
  Report Type: 
  Country: None (occurrence: None)
  Receive Date: 20070329
  Receipt Date: 20070326
  Transmission Date: 20070707
  Serious: Yes (Other)
  Sender: FDA-Public Use
  Company Number: GXKR2007DE02781

PATIENT
  Sex: Female

DRUGS (2)
  1. IBUHEXAL (NGX)  (IBUPROFEN) FILM-COATED TABLET [Suspect]
     Indication: BACK PAIN
     Dosage: ONCE/SINGLE, ORAL
     Route: 048
     Dates: start: 20010101
  2. ENAHEXAL (NGX) (ENALAPRIL MALEATE) TABLET [Suspect]
     Indication: HYPERTENSION
     Dosage: ORAL
     Route: 048
     Dates: end: 20060101

REACTIONS (4)
  - PAIN [None]
  - SUFFOCATION FEELING [None]
  - SWELLING FACE [None]
  - WEIGHT INCREASED [None]
